FAERS Safety Report 6670843-2 (Version None)
Quarter: 2010Q2

REPORT INFORMATION
  Report Type: 
  Country: None (occurrence: None)
  Receive Date: 20100407
  Receipt Date: 20100313
  Transmission Date: 20101027
  Serious: Yes (Other)
  Sender: FDA-Public Use
  Company Number: CA-JNJFOC-20030800219

PATIENT
  Sex: Female

DRUGS (9)
  1. LEVAQUIN [Suspect]
     Indication: SINUSITIS
     Route: 048
     Dates: start: 20030716
  2. BONAMINE [Concomitant]
     Indication: DIZZINESS
     Route: 048
  3. MIACALCIN [Concomitant]
  4. OXYCONTIN [Concomitant]
  5. VASOTEC [Concomitant]
  6. NASACORT [Concomitant]
  7. FIORINAL [Concomitant]
  8. LOSEC [Concomitant]
  9. VITAMIN B COMPLEX TAB [Concomitant]

REACTIONS (3)
  - ARTHRITIS [None]
  - HEADACHE [None]
  - HYPOACUSIS [None]
